FAERS Safety Report 12111155 (Version 1)
Quarter: 2016Q1

REPORT INFORMATION
  Report Type: Spontaneous
  Country: US (occurrence: US)
  Receive Date: 20160224
  Receipt Date: 20160224
  Transmission Date: 20160526
  Serious: Yes (Other)
  Sender: FDA-Public Use
  Company Number: US-JNJFOC-20160213461

PATIENT
  Age: 45 Year
  Sex: Female
  Weight: 99.79 kg

DRUGS (5)
  1. TYLENOL [Suspect]
     Active Substance: ACETAMINOPHEN
     Route: 048
  2. REMICADE [Suspect]
     Active Substance: INFLIXIMAB
     Indication: CROHN^S DISEASE
     Route: 042
     Dates: start: 2015, end: 2016
  3. REMICADE [Suspect]
     Active Substance: INFLIXIMAB
     Indication: CROHN^S DISEASE
     Route: 042
     Dates: start: 2006, end: 2015
  4. TYLENOL [Suspect]
     Active Substance: ACETAMINOPHEN
     Indication: SINUSITIS
     Route: 048
  5. REMICADE [Suspect]
     Active Substance: INFLIXIMAB
     Indication: CROHN^S DISEASE
     Route: 042
     Dates: start: 201601

REACTIONS (9)
  - Crohn^s disease [Unknown]
  - Bronchitis [Unknown]
  - Product use issue [Unknown]
  - Nasopharyngitis [Recovered/Resolved]
  - Gastrointestinal obstruction [Unknown]
  - Off label use [Unknown]
  - Sinusitis [Recovered/Resolved]
  - Multiple allergies [Unknown]
  - Atypical pneumonia [Recovered/Resolved]

NARRATIVE: CASE EVENT DATE: 20160112
